FAERS Safety Report 6152672-1 (Version None)
Quarter: 2009Q2

REPORT INFORMATION
  Report Type: 
  Country: None (occurrence: None)
  Receive Date: 20090413
  Receipt Date: 20090407
  Transmission Date: 20091009
  Serious: Yes (Death, Hospitalization, Other)
  Sender: FDA-Public Use
  Company Number: US-BAYER-200917123NA

PATIENT
  Age: 85 Year
  Sex: Male

DRUGS (6)
  1. LEUKINE [Suspect]
     Indication: MYELODYSPLASTIC SYNDROME
     Route: 058
     Dates: start: 20090317, end: 20090320
  2. LEUKINE [Suspect]
     Route: 058
     Dates: start: 20090325, end: 20090326
  3. VIDAZA [Concomitant]
  4. METFORMIN HCL [Concomitant]
  5. GLIPIZIDE [Concomitant]
  6. OMEPRAZOLE [Concomitant]

REACTIONS (6)
  - CARDIOPULMONARY FAILURE [None]
  - DEHYDRATION [None]
  - METABOLIC ACIDOSIS [None]
  - PANCYTOPENIA [None]
  - PRURITUS [None]
  - RENAL FAILURE ACUTE [None]
